FAERS Safety Report 24410567 (Version 2)
Quarter: 2024Q4

REPORT INFORMATION
  Report Type: Spontaneous
  Country: DE (occurrence: DE)
  Receive Date: 20241008
  Receipt Date: 20241111
  Transmission Date: 20250115
  Serious: Yes (Other)
  Sender: SANDOZ
  Company Number: DE-BRISTOL-MYERS SQUIBB COMPANY-2024-147630

PATIENT
  Age: 75 Year
  Sex: Male
  Weight: 80 kg

DRUGS (14)
  1. CARBOPLATIN [Suspect]
     Active Substance: CARBOPLATIN
     Indication: Non-small cell lung cancer
     Dosage: 5 AUC- MG/MIN*ML
     Route: 042
     Dates: start: 20240805
  2. CARBOPLATIN [Suspect]
     Active Substance: CARBOPLATIN
     Dosage: 5 AUC- MG/MIN*ML
     Route: 042
     Dates: start: 20240923
  3. CARBOPLATIN [Suspect]
     Active Substance: CARBOPLATIN
     Dosage: 5 AUC- MG/MIN*ML, START DATE 02-SEP-2024
     Route: 042
     Dates: start: 20240902
  4. PACLITAXEL [Suspect]
     Active Substance: PACLITAXEL
     Indication: Non-small cell lung cancer
     Dosage: 100 MG/M2
     Route: 042
     Dates: start: 20240805
  5. PACLITAXEL [Suspect]
     Active Substance: PACLITAXEL
     Dosage: 100 MG/M2
     Route: 042
     Dates: start: 20240812
  6. PACLITAXEL [Suspect]
     Active Substance: PACLITAXEL
     Dosage: 100 MG/M2
     Route: 042
     Dates: start: 20240819
  7. PACLITAXEL [Suspect]
     Active Substance: PACLITAXEL
     Dosage: 100 MG/M2
     Route: 042
     Dates: start: 20240902
  8. PACLITAXEL [Suspect]
     Active Substance: PACLITAXEL
     Dosage: 100 MG/M2
     Route: 042
     Dates: start: 20240909
  9. PACLITAXEL [Suspect]
     Active Substance: PACLITAXEL
     Dosage: 100 MG/M2
     Route: 042
     Dates: start: 20240923
  10. PACLITAXEL [Suspect]
     Active Substance: PACLITAXEL
     Dosage: 100 MG/M2
     Route: 042
     Dates: start: 20240930
  11. PACLITAXEL [Suspect]
     Active Substance: PACLITAXEL
     Dosage: 100 MG/M2
     Route: 042
     Dates: start: 20241007
  12. NIVOLUMAB [Suspect]
     Active Substance: NIVOLUMAB
     Indication: Non-small cell lung cancer
     Dosage: 21 DAYS/CYCLE FOR 3 CYCLES
     Route: 042
     Dates: start: 20240805
  13. PEGFILGRASTIM [Concomitant]
     Active Substance: PEGFILGRASTIM
     Indication: Prophylaxis
     Dosage: 48 MEQ (PER CYCLE)
     Route: 058
  14. RAMIPRIL [Concomitant]
     Active Substance: RAMIPRIL
     Indication: Prophylaxis
     Dosage: 2.5 MG
     Route: 048

REACTIONS (2)
  - Device related thrombosis [Not Recovered/Not Resolved]
  - Cytopenia [Recovered/Resolved]

NARRATIVE: CASE EVENT DATE: 20240812
